FAERS Safety Report 9349757 (Version 1)
Quarter: 2013Q2

REPORT INFORMATION
  Report Type: Spontaneous
  Country: US (occurrence: US)
  Receive Date: 20130614
  Receipt Date: 20130614
  Transmission Date: 20140414
  Serious: No
  Sender: FDA-Public Use
  Company Number: US-TEVA-412636USA

PATIENT
  Age: 18 Year
  Sex: Female
  Weight: 69.46 kg

DRUGS (3)
  1. PLAN B ONE-STEP [Suspect]
     Indication: POST COITAL CONTRACEPTION
     Dosage: 1.5 MILLIGRAM DAILY;
     Route: 048
     Dates: start: 20130610, end: 20130610
  2. PLAN B ONE-STEP [Suspect]
     Dosage: 1.5 MILLIGRAM DAILY;
     Route: 048
     Dates: start: 20130611, end: 20130611
  3. MAXALT [Concomitant]
     Indication: MIGRAINE
     Route: 048

REACTIONS (1)
  - Headache [Not Recovered/Not Resolved]
